FAERS Safety Report 6700053-1 (Version None)
Quarter: 2010Q2

REPORT INFORMATION
  Report Type: 
  Country: None (occurrence: None)
  Receive Date: 20100427
  Receipt Date: 20100427
  Transmission Date: 20101027
  Serious: Yes (Hospitalization)
  Sender: FDA-Public Use
  Company Number: None

PATIENT
  Age: 80 Year
  Sex: Male

DRUGS (1)
  1. OMEPRAZOLE [Suspect]
     Indication: HYPERCHLORHYDRIA
     Dosage: 20 MG BID PO
     Route: 048
     Dates: start: 20091201, end: 20100129

REACTIONS (1)
  - RASH [None]
